FAERS Safety Report 11848957 (Version 3)
Quarter: 2016Q1

REPORT INFORMATION
  Report Type: Report from Study
  Country: GB (occurrence: GB)
  Receive Date: 20151218
  Receipt Date: 20160216
  Transmission Date: 20160526
  Serious: Yes (Hospitalization, Other)
  Sender: FDA-Public Use
  Company Number: PHFR2015GB009486

PATIENT
  Age: 66 Year
  Sex: Female
  Weight: 56 kg

DRUGS (7)
  1. MORPHINE [Concomitant]
     Active Substance: MORPHINE
     Indication: ANALGESIC THERAPY
     Dosage: (2.5-5 MG), PRN
     Route: 048
     Dates: start: 201507
  2. OMEPRAZOLE. [Concomitant]
     Active Substance: OMEPRAZOLE
     Indication: PROPHYLAXIS
     Dosage: 20 MG, QD
     Route: 048
     Dates: start: 20151207
  3. PARACETAMOL [Concomitant]
     Active Substance: ACETAMINOPHEN
     Indication: ANALGESIC THERAPY
     Dosage: 4 G, QD
     Route: 048
     Dates: start: 2015
  4. IBUPROFEN. [Concomitant]
     Active Substance: IBUPROFEN
     Indication: ANALGESIC THERAPY
     Dosage: 1.6 G, QD
     Route: 048
     Dates: start: 2015
  5. CODEINE [Concomitant]
     Active Substance: CODEINE
     Indication: ANALGESIC THERAPY
     Dosage: 1.2 G, QD
     Route: 048
     Dates: start: 20151206
  6. AFINITOR [Suspect]
     Active Substance: EVEROLIMUS
     Indication: BREAST CANCER METASTATIC
     Dosage: 5 MG, QD
     Route: 048
     Dates: start: 20150612, end: 20151206
  7. CYCLIZINE [Concomitant]
     Active Substance: CYCLIZINE
     Indication: NAUSEA
     Dosage: 150 MG, QD
     Route: 048
     Dates: start: 20151206

REACTIONS (8)
  - Anaemia [Recovered/Resolved]
  - Haemorrhoids [Unknown]
  - Radiation proctitis [Recovered/Resolved]
  - Vasculitis [Recovered/Resolved]
  - Rectal haemorrhage [Recovered/Resolved]
  - Diverticulitis [Unknown]
  - Pollakiuria [Recovered/Resolved]
  - Vomiting [Recovered/Resolved]

NARRATIVE: CASE EVENT DATE: 201509
